FAERS Safety Report 15498200 (Version 1)
Quarter: 2018Q4

REPORT INFORMATION
  Report Type: Spontaneous
  Country: US (occurrence: US)
  Receive Date: 20181005
  Receipt Date: 20181005
  Transmission Date: 20190205
  Serious: Yes (Hospitalization)
  Sender: FDA-Public Use
  Company Number: None

PATIENT
  Age: 61 Year
  Sex: Male
  Weight: 93.1 kg

DRUGS (12)
  1. ZOFRAN [Concomitant]
     Active Substance: ONDANSETRON HYDROCHLORIDE
  2. ROBINUL [Concomitant]
     Active Substance: GLYCOPYRROLATE
  3. LEUCOVORIN CALCIUM. [Suspect]
     Active Substance: LEUCOVORIN CALCIUM
     Dates: end: 20180823
  4. COMPAZINE [Concomitant]
     Active Substance: PROCHLORPERAZINE MALEATE
  5. SENOKOT-S [Concomitant]
     Active Substance: DOCUSATE SODIUM\SENNOSIDES
  6. TRAMADOL. [Concomitant]
     Active Substance: TRAMADOL
  7. 5-FLUOROURACIL (5-FU) (19893) [Suspect]
     Active Substance: FLUOROURACIL
     Dates: end: 20180823
  8. CAMPTOSAR [Suspect]
     Active Substance: IRINOTECAN HYDROCHLORIDE
     Dates: end: 20180823
  9. LIORESAL [Concomitant]
     Active Substance: BACLOFEN
  10. CREON [Concomitant]
     Active Substance: PANCRELIPASE AMYLASE\PANCRELIPASE LIPASE\PANCRELIPASE PROTEASE
  11. NEXIUM [Concomitant]
     Active Substance: ESOMEPRAZOLE MAGNESIUM
  12. ELOXATIN [Concomitant]
     Active Substance: OXALIPLATIN
     Dates: end: 20180823

REACTIONS (10)
  - Abdominal pain upper [None]
  - Chills [None]
  - Vomiting [None]
  - Malaise [None]
  - Nausea [None]
  - Bile duct obstruction [None]
  - Chromaturia [None]
  - Enterococcal infection [None]
  - Pyrexia [None]
  - Fatigue [None]

NARRATIVE: CASE EVENT DATE: 20180924
